FAERS Safety Report 6273532-1 (Version None)
Quarter: 2009Q3

REPORT INFORMATION
  Report Type: 
  Country: None (occurrence: None)
  Receive Date: 20090720
  Receipt Date: 20090715
  Transmission Date: 20100115
  Serious: Yes (Other)
  Sender: FDA-Public Use
  Company Number: GB-GILEAD-2009-0023035

PATIENT
  Sex: Female
  Weight: 60 kg

DRUGS (9)
  1. ATRIPLA [Suspect]
     Indication: HIV INFECTION
     Route: 048
     Dates: start: 20090120, end: 20090212
  2. SUSTIVA [Concomitant]
     Indication: HIV INFECTION
     Dates: start: 20051015, end: 20090119
  3. SUSTIVA [Concomitant]
     Dates: start: 20090212
  4. EMTRIVA [Concomitant]
     Indication: HIV INFECTION
     Dates: start: 20051015, end: 20061120
  5. EMTRIVA [Concomitant]
     Dates: start: 20070301, end: 20090119
  6. EMTRIVA [Concomitant]
     Dates: start: 20090212
  7. VIREAD [Concomitant]
     Indication: HIV INFECTION
     Dates: start: 20051015, end: 20061120
  8. VIREAD [Concomitant]
     Dates: start: 20070301, end: 20090119
  9. VIREAD [Concomitant]
     Dates: start: 20090212

REACTIONS (1)
  - NEUTROPENIA [None]
